FAERS Safety Report 5892161-2 (Version None)
Quarter: 2008Q3

REPORT INFORMATION
  Report Type: 
  Country: None (occurrence: None)
  Receive Date: 20080918
  Receipt Date: 20080908
  Transmission Date: 20090109
  Serious: Yes (Other)
  Sender: FDA-Public Use
  Company Number: 20154

PATIENT
  Age: 47 Year
  Sex: Female

DRUGS (2)
  1. METHOTREXATE [Suspect]
     Indication: GESTATIONAL TROPHOBLASTIC TUMOUR
     Dosage: 1 MG/KG ALT_DAYS IM
     Route: 030
     Dates: start: 20050821
  2. LEUCOVORIN CALCIUM [Concomitant]

REACTIONS (2)
  - PLEURISY [None]
  - PNEUMONITIS [None]
